FAERS Safety Report 5096465-5 (Version None)
Quarter: 2006Q3

REPORT INFORMATION
  Report Type: 
  Country: None (occurrence: None)
  Receive Date: 20060905
  Receipt Date: 20060824
  Transmission Date: 20061208
  Serious: Yes (Other)
  Sender: FDA-Public Use
  Company Number: JP-SANOFI-SYNTHELABO-A01200607105

PATIENT
  Age: 75 Year
  Sex: Male

DRUGS (3)
  1. FLUOROURACIL [Suspect]
     Route: 042
     Dates: start: 20060814, end: 20060814
  2. LEUCOVORIN CALCIUM [Suspect]
     Route: 042
     Dates: start: 20060814, end: 20060814
  3. OXALIPLATIN [Suspect]
     Indication: LARGE INTESTINE CARCINOMA
     Route: 042
     Dates: start: 20060813, end: 20060813

REACTIONS (1)
  - HYPERAMMONAEMIA [None]
